FAERS Safety Report 6800953-8 (Version None)
Quarter: 2010Q2

REPORT INFORMATION
  Report Type: 
  Country: None (occurrence: None)
  Receive Date: 20100629
  Receipt Date: 20100624
  Transmission Date: 20101027
  Serious: Yes (Death, Other)
  Sender: FDA-Public Use
  Company Number: PHHY2010US40456

PATIENT
  Sex: Male
  Weight: 141.9 kg

DRUGS (4)
  1. EXJADE [Suspect]
     Indication: IRON OVERLOAD
     Dosage: 500 MG, BID
     Route: 048
     Dates: start: 20100527, end: 20100608
  2. VIDAZA [Concomitant]
     Route: 017
  3. AVODART [Concomitant]
  4. CYMBALTA [Concomitant]

REACTIONS (3)
  - CEREBRAL HAEMORRHAGE [None]
  - DEATH [None]
  - THROMBOCYTOPENIA [None]
